FAERS Safety Report 11805310 (Version 1)
Quarter: 2015Q4

REPORT INFORMATION
  Report Type: Spontaneous
  Country: GB (occurrence: GB)
  Receive Date: 20151206
  Receipt Date: 20151206
  Transmission Date: 20160305
  Serious: Yes (Other)
  Sender: FDA-Public Use
  Company Number: GB-HOSPIRA-3094745

PATIENT
  Age: 77 Year
  Sex: Male

DRUGS (4)
  1. CARBOPLATIN. [Suspect]
     Active Substance: CARBOPLATIN
     Indication: METASTATIC NEOPLASM
  2. PACLITAXEL. [Suspect]
     Active Substance: PACLITAXEL
     Indication: EXTRAMAMMARY PAGET^S DISEASE
  3. CARBOPLATIN. [Suspect]
     Active Substance: CARBOPLATIN
     Indication: EXTRAMAMMARY PAGET^S DISEASE
  4. PACLITAXEL. [Suspect]
     Active Substance: PACLITAXEL
     Indication: METASTATIC NEOPLASM

REACTIONS (5)
  - Peripheral sensory neuropathy [Recovering/Resolving]
  - Alopecia [Unknown]
  - Neutropenia [Unknown]
  - Deep vein thrombosis [Unknown]
  - Fatigue [Unknown]
